FAERS Safety Report 9111512 (Version 2)
Quarter: 2014Q1

REPORT INFORMATION
  Report Type: Spontaneous
  Country: US (occurrence: US)
  Receive Date: 20130219
  Receipt Date: 20140213
  Transmission Date: 20141002
  Serious: No
  Sender: FDA-Public Use
  Company Number: US-BRISTOL-MYERS SQUIBB COMPANY-17224296

PATIENT
  Age: 59 Year
  Sex: Female
  Weight: 57.14 kg

DRUGS (1)
  1. ABATACEPT SUBQ INJECTION 125MG/ML [Suspect]
     Dosage: LAST INJECTION 13DEC12,30JAN13?1G68852-SEP13
     Route: 058

REACTIONS (4)
  - Drug ineffective [Unknown]
  - Contusion [Unknown]
  - Influenza [Not Recovered/Not Resolved]
  - Product quality issue [Unknown]
